FAERS Safety Report 5126154-X (Version None)
Quarter: 2006Q3

REPORT INFORMATION
  Report Type: 
  Country: None (occurrence: None)
  Receive Date: 20060823
  Receipt Date: 20060321
  Transmission Date: 20061208
  Serious: Yes (Other)
  Sender: FDA-Public Use
  Company Number: 2006040731

PATIENT
  Age: 86 Year
  Sex: Female

DRUGS (1)
  1. NORVASC [Suspect]
     Indication: ILL-DEFINED DISORDER
     Dosage: 5 MG (5 MG,1 IN 1 D),ORAL
     Route: 048

REACTIONS (3)
  - ASTHENIA [None]
  - HEART RATE INCREASED [None]
  - TREMOR [None]
